FAERS Safety Report 6896159-7 (Version None)
Quarter: 2010Q3

REPORT INFORMATION
  Report Type: 
  Country: None (occurrence: None)
  Receive Date: 20100802
  Receipt Date: 20100721
  Transmission Date: 20110219
  Serious: Yes (Hospitalization)
  Sender: FDA-Public Use
  Company Number: A0865617A

PATIENT
  Age: 44 Year
  Sex: Female
  Weight: 109.5 kg

DRUGS (12)
  1. AVANDIA [Suspect]
     Dosage: 8MG PER DAY
     Dates: start: 19990101, end: 20050901
  2. AVANDAMET [Suspect]
     Dosage: 8MG PER DAY
     Route: 048
     Dates: start: 20030301, end: 20030501
  3. ZAROXOLYN [Concomitant]
  4. LABETALOL HCL [Concomitant]
  5. COZAAR [Concomitant]
  6. AMARYL [Concomitant]
  7. SYNTHROID [Concomitant]
  8. LIPITOR [Concomitant]
  9. NORVASC [Concomitant]
  10. IMIPRAMINE [Concomitant]
  11. INSULIN [Concomitant]
  12. SPIRIVA [Concomitant]

REACTIONS (4)
  - CARDIAC FAILURE CONGESTIVE [None]
  - FEMUR FRACTURE [None]
  - MYOCARDIAL INFARCTION [None]
  - PNEUMONIA [None]
